FAERS Safety Report 6747549-4 (Version None)
Quarter: 2010Q2

REPORT INFORMATION
  Report Type: 
  Country: None (occurrence: None)
  Receive Date: 20100528
  Receipt Date: 20100518
  Transmission Date: 20101027
  Serious: Yes (Hospitalization)
  Sender: FDA-Public Use
  Company Number: GXKR2010FR05591

PATIENT
  Age: 44 Year
  Sex: Male

DRUGS (2)
  1. METHADONE (NGX) [Interacting]
     Indication: DRUG DEPENDENCE
     Dosage: 120 MG/DAY
     Route: 065
  2. NALTREXONE (NGX) [Suspect]
     Indication: ALCOHOLISM
     Dosage: 50 MG/DAY
     Route: 065

REACTIONS (8)
  - AGITATION [None]
  - DRUG INTERACTION [None]
  - DRUG WITHDRAWAL SYNDROME [None]
  - HALLUCINATION [None]
  - HYPERTENSION [None]
  - PYREXIA [None]
  - STRESS CARDIOMYOPATHY [None]
  - TACHYCARDIA [None]
